FAERS Safety Report 5186797-4 (Version None)
Quarter: 2006Q4

REPORT INFORMATION
  Report Type: 
  Country: None (occurrence: None)
  Receive Date: 20061213
  Receipt Date: 20061205
  Transmission Date: 20070319
  Serious: Yes (Other)
  Sender: FDA-Public Use
  Company Number: S06-USA-05107-01

PATIENT
  Age: 48 Year
  Sex: Male

DRUGS (4)
  1. CAMPRAL [Suspect]
     Indication: ALCOHOL REHABILITATION
     Dosage: 666 MG TID PO
     Route: 048
     Dates: start: 20061128, end: 20061202
  2. VENLAFAXINE HCL [Concomitant]
  3. SYNTHROID [Concomitant]
  4. BUSPAR [Concomitant]

REACTIONS (15)
  - ABDOMINAL PAIN [None]
  - ABNORMAL BEHAVIOUR [None]
  - ANXIETY [None]
  - DIARRHOEA [None]
  - HEADACHE [None]
  - HOMICIDAL IDEATION [None]
  - HYPERHIDROSIS [None]
  - HYPERSENSITIVITY [None]
  - INSOMNIA [None]
  - NAUSEA [None]
  - PRURITUS [None]
  - RASH [None]
  - THINKING ABNORMAL [None]
  - TREMOR [None]
  - VISION BLURRED [None]
